FAERS Safety Report 7372458-X (Version None)
Quarter: 2011Q1

REPORT INFORMATION
  Report Type: 
  Country: None (occurrence: None)
  Receive Date: 20110324
  Receipt Date: 20110318
  Transmission Date: 20110831
  Serious: Yes (Death)
  Sender: FDA-Public Use
  Company Number: US-ABBOTT-11P-163-0713323-00

PATIENT
  Sex: Female

DRUGS (2)
  1. LUPRON DEPOT [Suspect]
  2. LUPRON DEPOT [Suspect]
     Indication: UTERINE LEIOMYOMA
     Dates: end: 20090701

REACTIONS (1)
  - DEATH [None]
